FAERS Safety Report 5857738-9 (Version None)
Quarter: 2008Q3

REPORT INFORMATION
  Report Type: 
  Country: None (occurrence: None)
  Receive Date: 20080826
  Receipt Date: 20080818
  Transmission Date: 20090109
  Serious: Yes (Hospitalization, Other)
  Sender: FDA-Public Use
  Company Number: TH-GILEAD-2008-0017828

PATIENT
  Sex: Male

DRUGS (5)
  1. VIREAD [Suspect]
     Indication: HIV INFECTION
     Route: 048
     Dates: start: 20071128
  2. VIREAD [Suspect]
     Route: 048
     Dates: start: 20071226
  3. DARUNAVIR [Concomitant]
     Indication: HIV INFECTION
     Route: 048
     Dates: start: 20071128
  4. LAMIVUDINE [Concomitant]
     Indication: HIV INFECTION
     Route: 048
     Dates: start: 20071128
  5. RITONAVIR [Concomitant]
     Indication: HIV INFECTION
     Route: 048
     Dates: start: 20071128

REACTIONS (3)
  - ANAEMIA [None]
  - PYREXIA [None]
  - RASH MACULO-PAPULAR [None]
